FAERS Safety Report 6217059-1 (Version None)
Quarter: 2009Q2

REPORT INFORMATION
  Report Type: 
  Country: None (occurrence: None)
  Receive Date: 20090606
  Receipt Date: 20090529
  Transmission Date: 20091009
  Serious: Yes (Hospitalization)
  Sender: FDA-Public Use
  Company Number: FR-PFIZER INC-2009219996

PATIENT
  Age: 77 Year

DRUGS (12)
  1. TAHOR [Suspect]
     Dosage: 80 MG, 1X/DAY
     Route: 048
     Dates: end: 20090323
  2. AUGMENTIN [Suspect]
     Dosage: 1 DF, 3X/DAY
     Dates: start: 20081231, end: 20090113
  3. AUGMENTIN [Suspect]
     Dosage: 1 DF, 3X/DAY
     Dates: start: 20090101, end: 20090101
  4. AUGMENTIN [Suspect]
     Dosage: 1 DF, 3X/DAY
     Route: 048
     Dates: start: 20090201, end: 20090301
  5. SOTALEX [Concomitant]
     Dosage: 40 MG, 2X/DAY
     Route: 048
  6. PREVISCAN [Concomitant]
     Route: 048
  7. INIPOMP [Concomitant]
     Route: 048
  8. ASPEGIC 1000 [Concomitant]
     Dosage: 100 MG, UNK
  9. DISCOTRINE [Concomitant]
     Dosage: 10 MG, 1X/DAY
  10. QUESTRAN [Concomitant]
     Dosage: 4 G, 3X/DAY
  11. FERRO-GRAD [Concomitant]
  12. LEXOMIL [Concomitant]
     Dosage: UNK

REACTIONS (2)
  - HEPATITIS CHOLESTATIC [None]
  - RHABDOMYOLYSIS [None]
